FAERS Safety Report 6388838-5 (Version None)
Quarter: 2009Q4

REPORT INFORMATION
  Report Type: 
  Country: None (occurrence: None)
  Receive Date: 20091005
  Receipt Date: 20090929
  Transmission Date: 20100525
  Serious: Yes (Other)
  Sender: FDA-Public Use
  Company Number: US-GILEAD-2009-0024502

PATIENT
  Sex: Male
  Weight: 117.13 kg

DRUGS (22)
  1. LETAIRIS [Suspect]
     Indication: PULMONARY ARTERIAL HYPERTENSION
     Route: 048
     Dates: start: 20090806, end: 20090918
  2. FUROSEMIDE [Concomitant]
  3. HYZAAR [Concomitant]
  4. COREG [Concomitant]
  5. AMLODIPINE BESYLATE [Concomitant]
  6. DILTIAZEM HCL [Concomitant]
  7. HYDRALAZINE [Concomitant]
  8. HUMALOG [Concomitant]
  9. LANTUS [Concomitant]
  10. ALLOPURINOL [Concomitant]
  11. ZOCOR [Concomitant]
  12. FLUTICASONE [Concomitant]
  13. ALBUTEROL [Concomitant]
  14. FLONASE [Concomitant]
  15. SPIRIVA [Concomitant]
  16. CENTRUM SILVER [Concomitant]
  17. CALTRATE 600 +D PLUS [Concomitant]
  18. TRAMADOL HCL [Concomitant]
  19. HYDROCODONE BITARTRATE AND ACETAMINOPHEN [Concomitant]
  20. ASPIRIN [Concomitant]
  21. ANDROGEL [Concomitant]
  22. MOVE FREE [Concomitant]

REACTIONS (4)
  - DIZZINESS [None]
  - DYSPNOEA [None]
  - HYPOGLYCAEMIA [None]
  - RENAL IMPAIRMENT [None]
